FAERS Safety Report 7157497-6 (Version None)
Quarter: 2010Q4

REPORT INFORMATION
  Report Type: 
  Country: None (occurrence: None)
  Receive Date: 20101214
  Receipt Date: 20101201
  Transmission Date: 20110411
  Serious: Yes (Life-Threatening)
  Sender: FDA-Public Use
  Company Number: IL-ASTRAZENECA-2010SE57203

PATIENT
  Age: 29 Year
  Sex: Female

DRUGS (3)
  1. SEROQUEL XR [Suspect]
     Indication: PSYCHOTIC DISORDER
     Route: 048
     Dates: start: 20101001
  2. SEROQUEL XR [Interacting]
     Route: 048
  3. YASMIN [Interacting]
     Indication: CONTRACEPTION
     Dosage: DROSPIRENONE 3 MG, ETHINYL ESTRADIOL 0.03 MG
     Route: 065

REACTIONS (2)
  - DRUG INTERACTION [None]
  - PULMONARY EMBOLISM [None]
